FAERS Safety Report 15713842 (Version 1)
Quarter: 2018Q4

REPORT INFORMATION
  Report Type: Report from Study
  Country: ID (occurrence: ID)
  Receive Date: 20181212
  Receipt Date: 20181212
  Transmission Date: 20190205
  Serious: Yes (Death, Hospitalization, Other)
  Sender: FDA-Public Use
  Company Number: ID-BAYER-2018-194631

PATIENT
  Age: 63 Year
  Sex: Female

DRUGS (1)
  1. NEXAVAR [Suspect]
     Active Substance: SORAFENIB
     Indication: HEPATOCELLULAR CARCINOMA
     Dosage: 400 MG, QD
     Route: 048
     Dates: start: 20180913, end: 20181122

REACTIONS (13)
  - Hepatocellular carcinoma [Fatal]
  - Fatigue [Fatal]
  - Metastases to lymph nodes [Fatal]
  - Pleural effusion [Fatal]
  - Pain of skin [Fatal]
  - Oedema peripheral [Fatal]
  - Diarrhoea [Fatal]
  - Anger [Fatal]
  - Blister [None]
  - Dyspnoea [Fatal]
  - Blister rupture [None]
  - Depressed level of consciousness [Fatal]
  - Wound secretion [Fatal]

NARRATIVE: CASE EVENT DATE: 20180913
